FAERS Safety Report 7510539-8 (Version None)
Quarter: 2011Q2

REPORT INFORMATION
  Report Type: 
  Country: None (occurrence: None)
  Receive Date: 20110530
  Receipt Date: 20110524
  Transmission Date: 20111010
  Serious: Yes (Hospitalization)
  Sender: FDA-Public Use
  Company Number: FR-BIOGENIDEC-2011BI019180

PATIENT
  Age: 30 Year
  Sex: Male

DRUGS (3)
  1. TOPIRAMATE [Concomitant]
     Indication: TREMOR
     Dates: start: 20101206
  2. TOPIRAMATE [Concomitant]
     Dates: end: 20101228
  3. TYSABRI [Suspect]
     Indication: MULTIPLE SCLEROSIS
     Route: 042
     Dates: start: 20091001

REACTIONS (7)
  - TREMOR [None]
  - UHTHOFF'S PHENOMENON [None]
  - GAIT DISTURBANCE [None]
  - BRONCHOPNEUMOPATHY [None]
  - DECREASED APPETITE [None]
  - WEIGHT DECREASED [None]
  - NASOPHARYNGITIS [None]
